FAERS Safety Report 18955616 (Version 1)
Quarter: 2021Q1

REPORT INFORMATION
  Report Type: Spontaneous
  Country: GB (occurrence: GB)
  Receive Date: 20210302
  Receipt Date: 20210302
  Transmission Date: 20210420
  Serious: Yes (Other)
  Sender: FDA-Public Use
  Company Number: GB-AUROBINDO-AUR-APL-2021-007922

PATIENT
  Age: 11 Year
  Sex: Female

DRUGS (3)
  1. BUPIVACAINE HYDROCHLORIDE. [Suspect]
     Active Substance: BUPIVACAINE HYDROCHLORIDE
     Dosage: 0.1 PERCENT (EPIDURAL INFUSION)
     Route: 065
  2. BUPIVACAINE HYDROCHLORIDE. [Suspect]
     Active Substance: BUPIVACAINE HYDROCHLORIDE
     Indication: PRODUCT USED FOR UNKNOWN INDICATION
     Dosage: 0.25 PERCENT (10 ML) AS AN INITIAL BOLUS
     Route: 065
  3. FENTANYL. [Suspect]
     Active Substance: FENTANYL
     Indication: PRODUCT USED FOR UNKNOWN INDICATION
     Dosage: UNK (2 ?M/ML)
     Route: 065

REACTIONS (4)
  - Hypoaesthesia [Recovered/Resolved]
  - Chest expansion decreased [Recovering/Resolving]
  - Paralysis [Unknown]
  - Flail chest [Recovering/Resolving]
